FAERS Safety Report 9184601 (Version 1)
Quarter: 2013Q1

REPORT INFORMATION
  Report Type: Spontaneous
  Country: ES (occurrence: ES)
  Receive Date: 20130324
  Receipt Date: 20130324
  Transmission Date: 20140127
  Serious: Yes (Death, Hospitalization, Other)
  Sender: FDA-Public Use
  Company Number: ES-ELI_LILLY_AND_COMPANY-ES201303007460

PATIENT
  Sex: Female

DRUGS (11)
  1. FORSTEO [Suspect]
     Indication: OSTEOPOROSIS
     Dosage: 20 UG, QD
     Route: 058
     Dates: start: 20100316
  2. METOJECT [Concomitant]
     Dosage: 20 MG, WEEKLY (1/W)
     Route: 058
  3. LEDERFOLIN [Concomitant]
     Dosage: 15 MG, WEEKLY (1/W)
     Route: 065
  4. DACORTIN [Concomitant]
     Dosage: 12.5 MG, UNK
     Route: 065
  5. PARACETAMOL [Concomitant]
     Dosage: UNK, PRN
     Route: 065
  6. TRAMADOL [Concomitant]
     Dosage: UNK, PRN
     Route: 065
  7. CALCIUM [Concomitant]
     Dosage: UNK, UNKNOWN
     Route: 065
  8. VITAMIN D [Concomitant]
     Dosage: UNK, UNKNOWN
     Route: 065
  9. PREGABALIN [Concomitant]
     Dosage: 75 MG, BID
     Route: 065
  10. TROMALYT [Concomitant]
     Dosage: 150 MG, QD
     Route: 065
  11. OMEPRAZOL [Concomitant]
     Dosage: 20 MG, UNK

REACTIONS (8)
  - Pneumonia [Fatal]
  - Fungal infection [Unknown]
  - Bronchospasm [Unknown]
  - Rib fracture [Unknown]
  - Respiratory failure [Unknown]
  - Pneumonia cytomegaloviral [Unknown]
  - Aspiration bronchial [Unknown]
  - Aortic elongation [Unknown]
